FAERS Safety Report 15679667 (Version 2)
Quarter: 2018Q4

REPORT INFORMATION
  Report Type: Report from Study
  Country: US (occurrence: US)
  Receive Date: 20181203
  Receipt Date: 20181226
  Transmission Date: 20190205
  Serious: Yes (Hospitalization, Other)
  Sender: FDA-Public Use
  Company Number: US-GILEAD-2018-0377584

PATIENT
  Age: 58 Year
  Sex: Female

DRUGS (12)
  1. ALPRAZOLAM. [Concomitant]
     Active Substance: ALPRAZOLAM
  2. SYMBICORT [Concomitant]
     Active Substance: BUDESONIDE\FORMOTEROL FUMARATE DIHYDRATE
  3. SPIRIVA [Concomitant]
     Active Substance: TIOTROPIUM BROMIDE MONOHYDRATE
  4. ECOTRIN 650 [Concomitant]
  5. AMBRISENTAN [Suspect]
     Active Substance: AMBRISENTAN
     Indication: PULMONARY HYPERTENSION
     Dosage: 5 NG, QD
     Route: 065
  6. MINOXIDIL. [Concomitant]
     Active Substance: MINOXIDIL
  7. DULOXETINE. [Concomitant]
     Active Substance: DULOXETINE
  8. SILDENAFIL. [Concomitant]
     Active Substance: SILDENAFIL
  9. TOPIRAMATE. [Concomitant]
     Active Substance: TOPIRAMATE
  10. ROPINIROLE. [Concomitant]
     Active Substance: ROPINIROLE
  11. FUROSEMIDE. [Concomitant]
     Active Substance: FUROSEMIDE
  12. ALBUTEROL [SALBUTAMOL] [Concomitant]
     Active Substance: ALBUTEROL

REACTIONS (3)
  - Pneumonia [Unknown]
  - Dyspnoea [Unknown]
  - Myocardial infarction [Unknown]
